FAERS Safety Report 4677939-5 (Version None)
Quarter: 2005Q2

REPORT INFORMATION
  Report Type: 
  Country: None (occurrence: None)
  Receive Date: 20050531
  Receipt Date: 20050524
  Transmission Date: 20051028
  Serious: Yes (Hospitalization, Other)
  Sender: FDA-Public Use
  Company Number: US-BRISTOL-MYERS SQUIBB COMPANY-12980793

PATIENT
  Age: 66 Year
  Sex: Male

DRUGS (17)
  1. EXCEDRIN (MIGRAINE) [Suspect]
     Indication: PAIN
     Route: 048
     Dates: start: 19850101, end: 20041101
  2. TRICOR [Suspect]
     Indication: TYPE IV HYPERLIPIDAEMIA
     Route: 048
     Dates: start: 20041001, end: 20041101
  3. SINUTAB [Suspect]
     Indication: MULTIPLE ALLERGIES
     Route: 048
     Dates: start: 19850101, end: 20041101
  4. ACETYLSALICYLIC ACID [Concomitant]
     Route: 048
     Dates: start: 20040101
  5. PHENYTOIN [Concomitant]
     Indication: HYPOGLYCAEMIA
     Route: 048
     Dates: start: 19820101
  6. VERAPAMIL [Concomitant]
     Indication: HYPERTENSION
     Route: 048
  7. DYAZIDE [Concomitant]
     Indication: HYPERTENSION
     Route: 048
  8. ZETIA [Concomitant]
     Indication: LIPIDS INCREASED
     Route: 048
     Dates: start: 20030101
  9. PYRIDOXINE HCL [Concomitant]
     Route: 048
  10. FOLIC ACID [Concomitant]
     Route: 048
  11. BUTALBITAL [Concomitant]
     Indication: ARTHRITIS
     Route: 048
  12. GLUCOSAMINE [Concomitant]
     Indication: ARTHRITIS
     Route: 048
  13. PSYLLIUM HYDROPHILIC MUCILLOID [Concomitant]
     Indication: PROPHYLAXIS
     Route: 048
  14. GEMFIBROZIL [Concomitant]
     Indication: BLOOD CHOLESTEROL INCREASED
     Route: 048
     Dates: start: 19820101, end: 20041001
  15. ACIDOPHILUS [Concomitant]
     Indication: GASTROINTESTINAL DISORDER
     Route: 048
  16. SPECTRAVITE [Concomitant]
     Indication: GASTROINTESTINAL DISORDER
     Route: 048
  17. IBS RELIEF [Concomitant]
     Indication: GASTROINTESTINAL DISORDER

REACTIONS (5)
  - DIVERTICULITIS [None]
  - HEPATIC ENZYME INCREASED [None]
  - HEPATIC STEATOSIS [None]
  - HEPATOMEGALY [None]
  - SEPSIS [None]
